FAERS Safety Report 9407916 (Version 2)
Quarter: 2013Q4

REPORT INFORMATION
  Report Type: Spontaneous
  Country: US (occurrence: US)
  Receive Date: 20130718
  Receipt Date: 20131007
  Transmission Date: 20140711
  Serious: Yes (Congenital Anomaly, Other)
  Sender: FDA-Public Use
  Company Number: US-PFIZER INC-2013208753

PATIENT
  Sex: Male

DRUGS (13)
  1. ZOLOFT [Suspect]
     Dosage: UNK
     Route: 064
     Dates: start: 1994, end: 2009
  2. PRENATAL VITAMINS [Concomitant]
     Dosage: UNK
     Route: 064
  3. VICODIN [Concomitant]
     Dosage: UNK
     Route: 064
  4. SERTRALINE HYDROCHLORIDE [Concomitant]
     Dosage: UNK
     Route: 064
  5. CALCIUM [Concomitant]
     Dosage: UNK
     Route: 064
  6. IBUPROFEN [Concomitant]
     Dosage: UNK
     Route: 064
  7. PHENADOZ [Concomitant]
     Dosage: UNK
     Route: 064
  8. AMOXICILLIN [Concomitant]
     Dosage: UNK
     Route: 064
  9. PROAIR HFA INHALER [Concomitant]
     Dosage: UNK
     Route: 064
  10. CEPHALEXIN [Concomitant]
     Dosage: UNK
     Route: 064
  11. HYDROCODONE W/ACETAMINOPHEN [Concomitant]
     Dosage: UNK
     Route: 064
  12. PROMETHAZINE [Concomitant]
     Dosage: UNK
     Route: 064
  13. VENTOLIN [Concomitant]
     Dosage: UNK
     Route: 064

REACTIONS (3)
  - Maternal exposure during pregnancy [Unknown]
  - Cleft lip [Unknown]
  - Cleft palate [Unknown]
